FAERS Safety Report 6162820-5 (Version None)
Quarter: 2009Q2

REPORT INFORMATION
  Report Type: 
  Country: None (occurrence: None)
  Receive Date: 20090421
  Receipt Date: 20090211
  Transmission Date: 20091009
  Serious: No
  Sender: FDA-Public Use
  Company Number: US-ASTRAZENECA-2009UW04052

PATIENT
  Age: 726 Month
  Sex: Female

DRUGS (7)
  1. TOPROL-XL [Suspect]
     Indication: HYPERTENSION
     Route: 048
     Dates: start: 20070201
  2. TRICOR [Concomitant]
  3. PREVACID [Concomitant]
  4. SYNTHROID [Concomitant]
  5. COZAAR [Concomitant]
  6. PAXIL [Concomitant]
  7. NORVASC [Concomitant]

REACTIONS (2)
  - AMNESIA [None]
  - NEUROPATHY PERIPHERAL [None]
